FAERS Safety Report 15490899 (Version 5)
Quarter: 2025Q2

REPORT INFORMATION
  Report Type: Spontaneous
  Country: RO (occurrence: RO)
  Receive Date: 20181012
  Receipt Date: 20250408
  Transmission Date: 20250716
  Serious: Yes (Hospitalization)
  Sender: AUROBINDO
  Company Number: RO-AUROBINDO-AUR-APL-2018-049808

PATIENT
  Age: 10 Year
  Sex: Male

DRUGS (7)
  1. SERTRALINE [Suspect]
     Active Substance: SERTRALINE HYDROCHLORIDE
     Indication: Obsessive-compulsive disorder
     Route: 065
  2. SERTRALINE [Suspect]
     Active Substance: SERTRALINE HYDROCHLORIDE
     Indication: Anxiety disorder
     Dosage: 25 MILLIGRAM, ONCE A DAY
     Route: 065
  3. SERTRALINE [Suspect]
     Active Substance: SERTRALINE HYDROCHLORIDE
     Indication: Phobia
     Dosage: 12.5 MILLIGRAM, ONCE A DAY (50 MG ? TABLET/DAY)
     Route: 065
  4. SERTRALINE [Suspect]
     Active Substance: SERTRALINE HYDROCHLORIDE
     Indication: Anxiety
  5. ALPRAZOLAM [Interacting]
     Active Substance: ALPRAZOLAM
     Indication: Obsessive-compulsive disorder
     Dosage: 0.25 MILLIGRAM, ONCE A DAY (0.25 MG, 1/2- 1/2-1/2)
     Route: 065
  6. ALPRAZOLAM [Interacting]
     Active Substance: ALPRAZOLAM
     Indication: Anxiety
  7. ALPRAZOLAM [Interacting]
     Active Substance: ALPRAZOLAM
     Indication: Phobia
     Dosage: 0.13 MILLIGRAM, 3 TIMES A DAY (0.25 MG ? - ? - ? TABLET/DAY )
     Route: 065

REACTIONS (13)
  - Tic [Unknown]
  - Psychotic disorder [Recovered/Resolved]
  - Anxiety [Recovering/Resolving]
  - Hallucinations, mixed [Recovered/Resolved]
  - Irritability [Unknown]
  - Aggression [Unknown]
  - Behaviour disorder [Unknown]
  - Affect lability [Unknown]
  - Substance-induced psychotic disorder [Recovered/Resolved]
  - Underdose [Unknown]
  - Off label use [Unknown]
  - Drug interaction [Recovered/Resolved]
  - Product use issue [Unknown]
